FAERS Safety Report 6254911-5 (Version None)
Quarter: 2009Q3

REPORT INFORMATION
  Report Type: 
  Country: None (occurrence: None)
  Receive Date: 20090702
  Receipt Date: 20090623
  Transmission Date: 20100115
  Serious: Yes (Death)
  Sender: FDA-Public Use
  Company Number: JP-PFIZER INC-2009232343

PATIENT
  Age: 67 Year

DRUGS (5)
  1. AZULFIDINE [Suspect]
     Indication: RHEUMATOID ARTHRITIS
     Dosage: UNK
     Route: 048
     Dates: start: 20090420, end: 20090526
  2. HYPEN [Suspect]
     Dosage: UNK
     Route: 048
     Dates: start: 20090413
  3. PL [Suspect]
     Dosage: UNK
     Route: 048
     Dates: start: 20090601
  4. RHEUMATREX [Concomitant]
     Dosage: 6 MG, WEEKLY
     Route: 048
     Dates: start: 20090527, end: 20090528
  5. FOSAMAX [Concomitant]
     Route: 048
     Dates: start: 20090420

REACTIONS (3)
  - DISSEMINATED INTRAVASCULAR COAGULATION [None]
  - PANCYTOPENIA [None]
  - SEPSIS [None]
